FAERS Safety Report 9256055 (Version 1)
Quarter: 2013Q2

REPORT INFORMATION
  Report Type: Spontaneous
  Country: US (occurrence: US)
  Receive Date: 20130425
  Receipt Date: 20130425
  Transmission Date: 20140414
  Serious: No
  Sender: FDA-Public Use
  Company Number: US-AMGEN-USASP2012009063

PATIENT
  Age: 65 Year
  Sex: Female

DRUGS (6)
  1. NEULASTA [Suspect]
     Indication: CHEMOTHERAPY
     Dosage: UNK
     Dates: start: 20120105
  2. LORAZEPAM [Concomitant]
  3. PROCHLORPERAZINE [Concomitant]
  4. DEXAMETHASONE [Concomitant]
  5. CYTOXAN [Concomitant]
     Dosage: UNK
  6. ADRIAMYCIN [Concomitant]
     Dosage: UNK

REACTIONS (4)
  - Injection site bruising [Recovered/Resolved]
  - Injection site haemorrhage [Recovered/Resolved]
  - Platelet count decreased [Not Recovered/Not Resolved]
  - Injection site pain [Recovered/Resolved]
